FAERS Safety Report 17340323 (Version 1)
Quarter: 2020Q1

REPORT INFORMATION
  Report Type: Spontaneous
  Country: US (occurrence: US)
  Receive Date: 20200129
  Receipt Date: 20200129
  Transmission Date: 20200409
  Serious: No
  Sender: FDA-Public Use
  Company Number: US-ALLERGAN-1919314US

PATIENT
  Age: 63 Year
  Sex: Female

DRUGS (7)
  1. SCULPTRA [Concomitant]
     Active Substance: POLYLACTIDE, L-
     Indication: SKIN WRINKLING
     Dosage: UNK, SINGLE
  2. BOTOX COSMETIC [Suspect]
     Active Substance: ONABOTULINUMTOXINA
     Indication: SKIN WRINKLING
     Dosage: 12 UNITS, SINGLE
     Route: 030
     Dates: start: 20180612, end: 20180612
  3. BOTOX COSMETIC [Suspect]
     Active Substance: ONABOTULINUMTOXINA
     Indication: SKIN WRINKLING
     Dosage: 12 UNITS, SINGLE
     Route: 030
     Dates: start: 20190131, end: 20190131
  4. BOTOX COSMETIC [Suspect]
     Active Substance: ONABOTULINUMTOXINA
     Indication: SKIN WRINKLING
     Dosage: 4 UNITS, SINGLE
     Route: 030
     Dates: start: 20181208, end: 20181208
  5. BOTOX COSMETIC [Suspect]
     Active Substance: ONABOTULINUMTOXINA
     Indication: SKIN WRINKLING
     Dosage: 4 UNITS, SINGLE
  6. BOTOX COSMETIC [Suspect]
     Active Substance: ONABOTULINUMTOXINA
     Indication: SKIN WRINKLING
     Dosage: 8 UNITS, SINGLE
     Route: 030
     Dates: start: 20180810, end: 20180810
  7. BOTOX COSMETIC [Suspect]
     Active Substance: ONABOTULINUMTOXINA
     Indication: SKIN WRINKLING
     Dosage: 32 UNITS, SINGLE
     Route: 030
     Dates: start: 20180410, end: 20180410

REACTIONS (8)
  - Off label use [Unknown]
  - Anxiety [Unknown]
  - Facial paresis [Unknown]
  - Speech disorder [Recovering/Resolving]
  - Dyskinesia [Recovering/Resolving]
  - Facial paralysis [Recovering/Resolving]
  - Product preparation error [Unknown]
  - Akinesia [Recovering/Resolving]

NARRATIVE: CASE EVENT DATE: 201812
